FAERS Safety Report 19903524 (Version 2)
Quarter: 2021Q4

REPORT INFORMATION
  Report Type: Report from Study
  Country: JP (occurrence: JP)
  Receive Date: 20211001
  Receipt Date: 20211004
  Transmission Date: 20220303
  Serious: Yes (Life-Threatening, Hospitalization, Other)
  Sender: FDA-Public Use
  Company Number: JP-BRISTOL-MYERS SQUIBB COMPANY-BMS-2021-100075

PATIENT
  Age: 73 Year
  Sex: Female
  Weight: 41.5 kg

DRUGS (13)
  1. NIVOLUMAB [Suspect]
     Active Substance: NIVOLUMAB
     Indication: Anaplastic thyroid cancer
     Dosage: 240 MILLIGRAM, Q2WK
     Route: 041
     Dates: start: 20210702
  2. LENVATINIB [Suspect]
     Active Substance: LENVATINIB
     Indication: Anaplastic thyroid cancer
     Dosage: 24 MILLIGRAM, QD
     Route: 065
     Dates: start: 20210702, end: 20210725
  3. LENVATINIB [Suspect]
     Active Substance: LENVATINIB
     Dosage: 20 MILLIGRAM, QD
     Route: 065
     Dates: start: 20210806, end: 20210902
  4. LENVATINIB [Suspect]
     Active Substance: LENVATINIB
     Dosage: 20 MILLIGRAM, QD
     Route: 065
     Dates: start: 20210907, end: 20210909
  5. LENVATINIB [Suspect]
     Active Substance: LENVATINIB
     Dosage: 14 MILLIGRAM, QD
     Route: 065
     Dates: start: 20210916
  6. AZILSARTAN KAMEDOXOMIL [Concomitant]
     Active Substance: AZILSARTAN KAMEDOXOMIL
     Indication: Hypertension
     Dosage: 40 MILLIGRAM, QD
     Route: 048
     Dates: start: 20210703
  7. TRICHLORMETHIAZIDE [Concomitant]
     Active Substance: TRICHLORMETHIAZIDE
     Indication: Hypertension
     Dosage: 1 MILLIGRAM, Q12H
     Route: 048
     Dates: start: 20210709
  8. LEVOTHYROXINE SODIUM [Concomitant]
     Active Substance: LEVOTHYROXINE SODIUM
     Indication: Thyroid cancer
     Dosage: 50 ?G, EVERYDAY
     Route: 048
  9. ETIZOLAM [Concomitant]
     Active Substance: ETIZOLAM
     Indication: Insomnia
     Dosage: 1.5 MILLIGRAM, QD
     Route: 048
  10. CALONAL [Concomitant]
     Active Substance: ACETAMINOPHEN
     Indication: Headache
     Dosage: 400 MILLIGRAM, Q8H
     Route: 048
  11. ALLOID G [Concomitant]
     Active Substance: SODIUM ALGINATE
     Indication: Gastritis prophylaxis
     Dosage: 20 MILLILITER, Q8H (EXCEPT SYRUP)
     Route: 048
  12. LEVOFLOXACIN HEMIHYDRATE [Concomitant]
     Active Substance: LEVOFLOXACIN
     Indication: Cellulitis
     Dosage: 500 MILLIGRAM, QD
     Route: 048
     Dates: start: 20210907
  13. LOXOPROFEN SODIUM [Concomitant]
     Active Substance: LOXOPROFEN SODIUM
     Indication: Chest pain
     Dosage: 60 MG, PRN
     Route: 048
     Dates: start: 20210715

REACTIONS (1)
  - Tumour perforation [Not Recovered/Not Resolved]

NARRATIVE: CASE EVENT DATE: 20210928
